FAERS Safety Report 4900907-2 (Version None)
Quarter: 2006Q1

REPORT INFORMATION
  Report Type: 
  Country: None (occurrence: None)
  Receive Date: 20060201
  Receipt Date: 20060121
  Transmission Date: 20060701
  Serious: Yes (Hospitalization)
  Sender: FDA-Public Use
  Company Number: GXKR2006AT00603

PATIENT
  Age: 75 Year
  Sex: Male

DRUGS (6)
  1. METFORMIN [Suspect]
     Indication: DIABETES MELLITUS
     Dosage: 1000 MG, BID, ORAL
     Route: 048
  2. FENOFIBRATE [Suspect]
     Indication: HYPERTRIGLYCERIDAEMIA
     Dosage: 200 MG, QD, ORAL
     Route: 048
  3. ROSIGLITAZONE                     (ROSIGLITAZONE) [Suspect]
     Indication: DIABETES MELLITUS
     Dosage: 2 MG, BID, ORAL
     Route: 048
  4. PHENPROCOUMON               (PHENPROCOUMON) [Concomitant]
  5. VALSARTAN [Concomitant]
  6. SYMPATHOMIMETICS                             (NO INGREDIENTS/SUBSTANCE [Concomitant]

REACTIONS (6)
  - DRUG INTERACTION [None]
  - MYOPATHY [None]
  - PAIN [None]
  - POLYNEUROPATHY [None]
  - RENAL IMPAIRMENT [None]
  - RHABDOMYOLYSIS [None]
